FAERS Safety Report 7348944-5 (Version None)
Quarter: 2011Q1

REPORT INFORMATION
  Report Type: 
  Country: None (occurrence: None)
  Receive Date: 20110314
  Receipt Date: 20110303
  Transmission Date: 20110831
  Serious: No
  Sender: FDA-Public Use
  Company Number: US-ROXANE LABORATORIES, INC.-2011-RO-00283RO

PATIENT
  Sex: Female

DRUGS (3)
  1. LEVOTHYROXINE [Concomitant]
     Indication: HYPOTHYROIDISM
  2. MEGESTROL ACETATE [Suspect]
     Indication: DECREASED APPETITE
     Dosage: 20 ML
     Route: 048
     Dates: start: 20100501, end: 20110201
  3. ALLERGY MEDICINE [Concomitant]
     Indication: MULTIPLE ALLERGIES

REACTIONS (1)
  - WEIGHT INCREASED [None]
